FAERS Safety Report 6771662-9 (Version None)
Quarter: 2010Q2

REPORT INFORMATION
  Report Type: 
  Country: None (occurrence: None)
  Receive Date: 20100611
  Receipt Date: 20100601
  Transmission Date: 20101027
  Serious: Yes (Other)
  Sender: FDA-Public Use
  Company Number: 2010JP003269

PATIENT
  Age: 2 Year
  Sex: Male

DRUGS (2)
  1. PROGRAF [Suspect]
     Indication: TRANSPLANT
  2. RECOMODULIN (THROMBOMODULIN ALPHA) [Concomitant]

REACTIONS (1)
  - THROMBOTIC MICROANGIOPATHY [None]
